FAERS Safety Report 4929057-6 (Version None)
Quarter: 2006Q1

REPORT INFORMATION
  Report Type: 
  Country: None (occurrence: None)
  Receive Date: 20060301
  Receipt Date: 20050414
  Transmission Date: 20060701
  Serious: Yes (Hospitalization)
  Sender: FDA-Public Use
  Company Number: US-MERCK-0504USA03083

PATIENT
  Age: 57 Year
  Sex: Male
  Weight: 127 kg

DRUGS (6)
  1. VIOXX [Suspect]
     Indication: PAIN
     Route: 048
     Dates: start: 20031205, end: 20040101
  2. INSULIN [Concomitant]
     Route: 065
  3. NORVASC [Concomitant]
     Route: 065
  4. AVANDIA [Concomitant]
     Route: 065
  5. LISINOPRIL [Concomitant]
     Route: 065
  6. GLUCOPHAGE [Concomitant]
     Route: 065

REACTIONS (2)
  - CARDIAC DISORDER [None]
  - CHEST PAIN [None]
